FAERS Safety Report 6917267-8 (Version None)
Quarter: 2010Q3

REPORT INFORMATION
  Report Type: 
  Country: None (occurrence: None)
  Receive Date: 20100810
  Receipt Date: 20100802
  Transmission Date: 20110219
  Serious: Yes (Life-Threatening, Hospitalization)
  Sender: FDA-Public Use
  Company Number: FR-MERCK-1008FRA00002

PATIENT
  Age: 68 Year
  Sex: Male

DRUGS (18)
  1. EMEND [Suspect]
     Indication: PROPHYLAXIS OF NAUSEA AND VOMITING
     Route: 048
     Dates: start: 20100504, end: 20100504
  2. EMEND [Suspect]
     Route: 048
     Dates: start: 20100505, end: 20100506
  3. EMEND [Suspect]
     Route: 048
     Dates: start: 20100525, end: 20100525
  4. FASTURTEC [Suspect]
     Route: 042
     Dates: start: 20100504, end: 20100506
  5. FASTURTEC [Suspect]
     Route: 042
     Dates: start: 20100525, end: 20100525
  6. METHYLPREDNISOLONE [Suspect]
     Route: 042
     Dates: start: 20100504, end: 20100506
  7. METHYLPREDNISOLONE [Suspect]
     Route: 042
     Dates: start: 20100525, end: 20100525
  8. ZOPHREN [Suspect]
     Indication: PROPHYLAXIS OF NAUSEA AND VOMITING
     Route: 042
     Dates: start: 20100504, end: 20100504
  9. ZOPHREN [Suspect]
     Route: 042
     Dates: start: 20100525, end: 20100525
  10. LASIX [Concomitant]
     Indication: NON-OBSTRUCTIVE CARDIOMYOPATHY
     Route: 065
     Dates: start: 20100501
  11. PERINDOPRIL ARGININE [Concomitant]
     Indication: NON-OBSTRUCTIVE CARDIOMYOPATHY
     Route: 065
     Dates: start: 20100501
  12. KARDEGIC [Concomitant]
     Indication: NON-OBSTRUCTIVE CARDIOMYOPATHY
     Route: 065
     Dates: start: 20100501
  13. CARBOPLATIN [Concomitant]
     Indication: METASTATIC BRONCHIAL CARCINOMA
     Route: 065
     Dates: start: 20100504, end: 20100506
  14. CARBOPLATIN [Concomitant]
     Route: 065
     Dates: start: 20100526, end: 20100526
  15. ETOPOSIDE [Concomitant]
     Indication: METASTATIC BRONCHIAL CARCINOMA
     Route: 065
     Dates: start: 20100504, end: 20100506
  16. ETOPOSIDE [Concomitant]
     Route: 065
     Dates: start: 20100526, end: 20100528
  17. REPAGLINIDE [Concomitant]
     Indication: INSULIN-REQUIRING TYPE 2 DIABETES MELLITUS
     Route: 065
  18. LANTUS [Concomitant]
     Indication: INSULIN-REQUIRING TYPE 2 DIABETES MELLITUS
     Route: 065

REACTIONS (4)
  - HYPOTENSION [None]
  - LOSS OF CONSCIOUSNESS [None]
  - MALAISE [None]
  - SUPRAVENTRICULAR TACHYCARDIA [None]
